FAERS Safety Report 24703900 (Version 1)
Quarter: 2024Q4

REPORT INFORMATION
  Report Type: Spontaneous
  Country: US (occurrence: US)
  Receive Date: 20241206
  Receipt Date: 20241206
  Transmission Date: 20250115
  Serious: Yes (Hospitalization, Other)
  Sender: ZYDUS PHARM
  Company Number: US-CADILA HEALTHCARE LIMITED-US-ZYDUS-115996

PATIENT

DRUGS (1)
  1. AMBRISENTAN [Suspect]
     Active Substance: AMBRISENTAN
     Indication: Pulmonary arterial hypertension
     Dosage: 10 MILLIGRAM, QD
     Route: 048

REACTIONS (2)
  - Respiratory failure [Recovered/Resolved]
  - Chronic right ventricular failure [Recovered/Resolved]

NARRATIVE: CASE EVENT DATE: 20241116
